FAERS Safety Report 9128190 (Version 2)
Quarter: 2013Q1

REPORT INFORMATION
  Report Type: Spontaneous
  Country: ES (occurrence: ES)
  Receive Date: 20130228
  Receipt Date: 20130307
  Transmission Date: 20140127
  Serious: Yes (Other)
  Sender: FDA-Public Use
  Company Number: ES-SANOFI-AVENTIS-2013SA016964

PATIENT
  Age: 28 Year
  Sex: Female

DRUGS (5)
  1. CLEXANE [Suspect]
     Indication: PRODUCT USED FOR UNKNOWN INDICATION
     Dosage: 1 AMPOULE, STRENGTH: 40 MG (4000 IU)
     Route: 058
     Dates: start: 20120825, end: 20120830
  2. AUGMENTINE [Suspect]
     Indication: PRODUCT USED FOR UNKNOWN INDICATION
     Dosage: 1AMP/8H
     Route: 042
     Dates: start: 20120826, end: 20120903
  3. PARACETAMOL [Suspect]
     Indication: PRODUCT USED FOR UNKNOWN INDICATION
     Route: 042
     Dates: start: 20120825, end: 20120830
  4. PANTOPRAZOLE [Concomitant]
     Dosage: 1 AMP, STRENGTH: 40 (UNIT NOT REPORTED)
     Route: 042
     Dates: start: 20120825
  5. NOLOTIL [Concomitant]
     Dosage: 2G/8H IV, STRENGTH: 0.4 G/ ML
     Route: 042
     Dates: start: 20120825

REACTIONS (1)
  - Hepatitis [Recovering/Resolving]
